FAERS Safety Report 5590623-9 (Version None)
Quarter: 2008Q1

REPORT INFORMATION
  Report Type: 
  Country: None (occurrence: None)
  Receive Date: 20080114
  Receipt Date: 20080102
  Transmission Date: 20080703
  Serious: Yes (Hospitalization)
  Sender: FDA-Public Use
  Company Number: FR-PFIZER INC-2006057483

PATIENT
  Age: 58 Year
  Sex: Male

DRUGS (6)
  1. ZOLOFT [Suspect]
     Route: 048
     Dates: start: 20060225, end: 20060323
  2. LEXOMIL [Suspect]
     Route: 048
  3. TEGRETOL [Suspect]
     Route: 048
     Dates: start: 20060225, end: 20060323
  4. DAFALGAN [Suspect]
     Route: 048
  5. TEMODAL [Suspect]
     Indication: GLIOBLASTOMA
     Route: 048
     Dates: start: 20060209, end: 20060323
  6. INEXIUM [Suspect]
     Route: 048

REACTIONS (2)
  - HERPES VIRUS INFECTION [None]
  - TOXIC SKIN ERUPTION [None]
